FAERS Safety Report 6935071-1 (Version None)
Quarter: 2010Q3

REPORT INFORMATION
  Report Type: 
  Country: None (occurrence: None)
  Receive Date: 20100822
  Receipt Date: 20100811
  Transmission Date: 20110219
  Serious: Yes (Hospitalization)
  Sender: FDA-Public Use
  Company Number: PHHY2010FR53712

PATIENT
  Sex: Male

DRUGS (2)
  1. TRILEPTAL [Suspect]
     Indication: POST-TRAUMATIC EPILEPSY
     Dosage: 1800 MG, QD
     Route: 048
     Dates: start: 20090201
  2. TOPIRAMATE [Suspect]
     Indication: POST-TRAUMATIC EPILEPSY
     Dosage: 300 MG, QD
     Route: 048
     Dates: start: 20080801, end: 20091101

REACTIONS (3)
  - NEPHROLITHIASIS [None]
  - SPEECH DISORDER DEVELOPMENTAL [None]
  - WEIGHT DECREASED [None]
